FAERS Safety Report 10015651 (Version 1)
Quarter: 2014Q1

REPORT INFORMATION
  Report Type: Spontaneous
  Country: US (occurrence: US)
  Receive Date: 20140317
  Receipt Date: 20140317
  Transmission Date: 20141002
  Serious: No
  Sender: FDA-Public Use
  Company Number: US-PFIZER INC-2014075612

PATIENT
  Age: 71 Year
  Sex: Female
  Weight: 59.41 kg

DRUGS (2)
  1. CHANTIX [Suspect]
     Indication: SMOKING CESSATION THERAPY
     Dosage: 0.5 MG, UNK
     Dates: start: 201402
  2. CHANTIX [Suspect]
     Dosage: UNK
     Dates: start: 2014

REACTIONS (2)
  - Nausea [Not Recovered/Not Resolved]
  - Malaise [Unknown]
